FAERS Safety Report 20359897 (Version 1)
Quarter: 2022Q1

REPORT INFORMATION
  Report Type: Spontaneous
  Country: JP (occurrence: JP)
  Receive Date: 20220121
  Receipt Date: 20220121
  Transmission Date: 20220423
  Serious: Yes (Other)
  Sender: FDA-Public Use
  Company Number: JP-SUN PHARMACEUTICAL INDUSTRIES LTD-2022RR-324443

PATIENT
  Age: 5 Decade
  Sex: Female

DRUGS (8)
  1. IRINOTECAN [Suspect]
     Active Substance: IRINOTECAN
     Indication: Small intestine carcinoma
     Dosage: 150 MILLIGRAM/SQ. METER, UNK
     Route: 065
  2. OXALIPLATIN [Suspect]
     Active Substance: OXALIPLATIN
     Indication: Small intestine carcinoma
     Dosage: 130 MILLIGRAM/SQ. METER, UNK
     Route: 065
     Dates: start: 201805
  3. CAPECITABINE [Suspect]
     Active Substance: CAPECITABINE
     Indication: Small intestine carcinoma
     Dosage: 3000 MILLIGRAM, DAILY
     Route: 065
     Dates: start: 201805
  4. BEVACIZUMAB [Suspect]
     Active Substance: BEVACIZUMAB
     Indication: Small intestine carcinoma
     Dosage: 7.5 MILLIGRAM/KILOGRAM, UNK
  5. FLUOROURACIL [Suspect]
     Active Substance: FLUOROURACIL
     Indication: Small intestine carcinoma
     Dosage: 400 MILLIGRAM/SQ. METER
     Route: 040
  6. FLUOROURACIL [Suspect]
     Active Substance: FLUOROURACIL
     Dosage: 2400 MILLIGRAM/SQ. METER, 46 HOURS CONTINUOUS
     Route: 040
  7. LEUCOVORIN [Suspect]
     Active Substance: LEUCOVORIN
     Indication: Small intestine carcinoma
     Dosage: 200 MILLIGRAM/SQ. METER
     Route: 065
  8. PANITUMUMAB [Suspect]
     Active Substance: PANITUMUMAB
     Indication: Small intestine carcinoma
     Dosage: 6 MILLIGRAM/KILOGRAM
     Route: 065

REACTIONS (5)
  - Therapeutic product effect incomplete [Unknown]
  - Disease recurrence [Unknown]
  - Malignant neoplasm progression [Unknown]
  - Cancer pain [Unknown]
  - Nausea [Unknown]
